FAERS Safety Report 5968369-4 (Version None)
Quarter: 2008Q4

REPORT INFORMATION
  Report Type: 
  Country: None (occurrence: None)
  Receive Date: 20081126
  Receipt Date: 20080925
  Transmission Date: 20090506
  Serious: Yes (Death, Disabling, Other)
  Sender: FDA-Public Use
  Company Number: SE-AVENTIS-200816223EU

PATIENT
  Sex: Female
  Weight: 1.48 kg

DRUGS (10)
  1. TRIATEC                            /00885601/ [Suspect]
     Route: 064
  2. LASIX LONG [Suspect]
     Route: 064
  3. ATACAND [Suspect]
     Route: 064
  4. SELOKEN                            /00376902/ [Suspect]
     Route: 064
  5. KALITABS [Concomitant]
     Route: 064
  6. SPIRONOLACTONE [Concomitant]
     Route: 064
  7. FRAGMIN [Concomitant]
     Route: 064
  8. DIGOXIN [Concomitant]
     Route: 064
  9. PANTOLOC                           /01263201/ [Concomitant]
     Route: 064
  10. CORTICOSTEROID NOS [Concomitant]
     Route: 064

REACTIONS (9)
  - ANURIA [None]
  - DEATH [None]
  - DRUG EXPOSURE DURING PREGNANCY [None]
  - HYDROCEPHALUS [None]
  - HYPOTENSION [None]
  - INTRAVENTRICULAR HAEMORRHAGE [None]
  - OLIGOHYDRAMNIOS [None]
  - PNEUMOTHORAX [None]
  - RETINOPATHY OF PREMATURITY [None]
